FAERS Safety Report 24136960 (Version 2)
Quarter: 2024Q4

REPORT INFORMATION
  Report Type: Report from Study
  Country: ES (occurrence: ES)
  Receive Date: 20240725
  Receipt Date: 20241212
  Transmission Date: 20250115
  Serious: Yes (Death, Other)
  Sender: ASTELLAS
  Company Number: ES-ASTELLAS-2024US020855

PATIENT
  Age: 5 Year
  Sex: Male
  Weight: 17 kg

DRUGS (5)
  1. ISAVUCONAZOLE [Suspect]
     Active Substance: ISAVUCONAZOLE
     Indication: Cerebral fungal infection
     Dosage: 10 MG/KG, EVERY 8 HOURS
     Route: 042
  2. ISAVUCONAZOLE [Suspect]
     Active Substance: ISAVUCONAZOLE
     Indication: Central nervous system fungal infection
     Dosage: 10 MG/KG, ONCE DAILY (200 MG/MAX DOSE)
     Route: 042
  3. AMPHOTERICIN B [Suspect]
     Active Substance: AMPHOTERICIN B
     Indication: Cerebral fungal infection
     Dosage: UNK UNK, UNKNOWN FREQ.
     Route: 065
  4. ANIDULAFUNGIN [Suspect]
     Active Substance: ANIDULAFUNGIN
     Indication: Cerebral fungal infection
     Dosage: UNK UNK, UNKNOWN FREQ.
     Route: 065
  5. ANIDULAFUNGIN [Suspect]
     Active Substance: ANIDULAFUNGIN
     Indication: Central nervous system fungal infection
     Dosage: UNK UNK, UNKNOWN FREQ. (MISUSE, OFF LABEL USE)
     Route: 065

REACTIONS (6)
  - Central nervous system fungal infection [Fatal]
  - Disease progression [Fatal]
  - Alanine aminotransferase increased [Unknown]
  - Aspartate aminotransferase increased [Unknown]
  - Product administered to patient of inappropriate age [Unknown]
  - Off label use [Unknown]
